FAERS Safety Report 16454321 (Version 1)
Quarter: 2019Q2

REPORT INFORMATION
  Report Type: Spontaneous
  Country: US (occurrence: US)
  Receive Date: 20190619
  Receipt Date: 20190619
  Transmission Date: 20190711
  Serious: No
  Sender: FDA-Public Use
  Company Number: US-ROCHE-2205706

PATIENT
  Age: 43 Year
  Sex: Female

DRUGS (16)
  1. VITAMIN B12 [VITAMIN B12 NOS] [Concomitant]
     Active Substance: CYANOCOBALAMIN
     Indication: VITAMIN B12 DEFICIENCY
     Route: 048
     Dates: start: 201004
  2. XELJANZ [Concomitant]
     Active Substance: TOFACITINIB CITRATE
     Route: 065
  3. ACTEMRA [Suspect]
     Active Substance: TOCILIZUMAB
     Indication: PRODUCT USED FOR UNKNOWN INDICATION
     Route: 058
  4. XANAX [Concomitant]
     Active Substance: ALPRAZOLAM
     Indication: ANXIETY
     Route: 060
     Dates: start: 201803
  5. XANAX [Concomitant]
     Active Substance: ALPRAZOLAM
     Indication: PANIC ATTACK
  6. FOLIC ACID. [Concomitant]
     Active Substance: FOLIC ACID
     Route: 048
     Dates: start: 201507
  7. VITAMIN C [Concomitant]
     Active Substance: ASCORBIC ACID
     Route: 065
     Dates: start: 201004
  8. PROAIR HFA [Concomitant]
     Active Substance: ALBUTEROL SULFATE
     Route: 055
     Dates: start: 201003
  9. RASUVO [Concomitant]
     Active Substance: METHOTREXATE SODIUM
  10. GABAPENTIN. [Concomitant]
     Active Substance: GABAPENTIN
     Indication: FIBROMYALGIA
     Route: 065
     Dates: start: 201702
  11. MONTELUKAST [Concomitant]
     Active Substance: MONTELUKAST SODIUM
     Indication: HYPERSENSITIVITY
     Route: 048
     Dates: start: 201204
  12. NORETHINDRONE [NORETHISTERONE] [Concomitant]
     Route: 048
     Dates: start: 201805
  13. DICLOFENAC [Concomitant]
     Active Substance: DICLOFENAC
     Dosage: PAIN PATCHES, APPLIED TO BACK, HANDS, AND FEET AS NEEDED FOR 12 HOURS
     Route: 065
     Dates: start: 201412
  14. MONTELUKAST [Concomitant]
     Active Substance: MONTELUKAST SODIUM
     Indication: ASTHMA
  15. TACROLIMUS. [Concomitant]
     Active Substance: TACROLIMUS
     Indication: RASH
     Route: 061
     Dates: start: 201712
  16. TRAMADOL. [Concomitant]
     Active Substance: TRAMADOL
     Indication: PAIN
     Route: 048
     Dates: start: 201608

REACTIONS (1)
  - Drug ineffective [Unknown]
